FAERS Safety Report 23441680 (Version 1)
Quarter: 2024Q1

REPORT INFORMATION
  Report Type: Report from Study
  Country: AT (occurrence: AT)
  Receive Date: 20240125
  Receipt Date: 20240125
  Transmission Date: 20240410
  Serious: Yes (Hospitalization)
  Sender: FDA-Public Use
  Company Number: DE-TEVA-VS-3148034

PATIENT
  Age: 62 Year
  Sex: Female
  Weight: 74 kg

DRUGS (19)
  1. LENALIDOMIDE [Suspect]
     Active Substance: LENALIDOMIDE
     Indication: Follicular lymphoma
     Route: 048
     Dates: start: 20230322, end: 20240108
  2. ROSUVASTATIN CALCIUM [Concomitant]
     Active Substance: ROSUVASTATIN CALCIUM
     Indication: Cardiovascular event prophylaxis
     Dates: start: 2018
  3. Kalzium [Concomitant]
     Indication: Vitamin supplementation
     Dates: start: 2022
  4. Lidaprim [Concomitant]
     Indication: Infection prophylaxis
     Dosage: TIME INTERVAL: 0.33333333 WEEKS
     Dates: start: 2023
  5. PANTOPRAZOLE SODIUM [Concomitant]
     Active Substance: PANTOPRAZOLE SODIUM
     Indication: Gastritis prophylaxis
     Dates: start: 20230323
  6. ASPIRIN [Concomitant]
     Active Substance: ASPIRIN
     Indication: Thrombosis prophylaxis
     Dates: start: 20230322
  7. NOVORAPID [Concomitant]
     Active Substance: INSULIN ASPART
     Indication: Type 2 diabetes mellitus
     Dosage: TIME INTERVAL: AS NECESSARY
     Dates: start: 2021
  8. Paspertin [Concomitant]
     Indication: Prophylaxis of nausea and vomiting
     Dosage: TIME INTERVAL: AS NECESSARY
     Dates: start: 20230323
  9. Novalgin [Concomitant]
     Indication: Pain prophylaxis
     Dosage: TIME INTERVAL: AS NECESSARY
     Dates: start: 20230323
  10. POLYETHYLENE GLYCOL 3350\POTASSIUM CHLORIDE\SODIUM BICARBONATE\SODIUM [Concomitant]
     Active Substance: POLYETHYLENE GLYCOL 3350\POTASSIUM CHLORIDE\SODIUM BICARBONATE\SODIUM CHLORIDE
     Indication: Constipation prophylaxis
     Dosage: TIME INTERVAL: AS NECESSARY
     Dates: start: 20230323
  11. Paracodin [Concomitant]
     Indication: Cough
     Dosage: TIME INTERVAL: AS NECESSARY
     Dates: start: 20230419
  12. PULMICORT TURBUHALER [Concomitant]
     Active Substance: BUDESONIDE
     Indication: Cough
     Dosage: 0,2/20 MG, 2/DAYS
     Dates: start: 20230517
  13. TRESIBA [Concomitant]
     Active Substance: INSULIN DEGLUDEC
     Indication: Type 2 diabetes mellitus
     Dosage: 12 IU, EVERY 1 DAYS
     Dates: start: 20230525
  14. ALENDRONSTAD [Concomitant]
     Indication: Osteoporosis postmenopausal
     Dosage: 70MG EVERY WEEK
     Dates: start: 2022
  15. VITAMIN D3 [Concomitant]
     Active Substance: CHOLECALCIFEROL
     Indication: Vitamin supplementation
     Dates: start: 2022
  16. VALACYCLOVIR HYDROCHLORIDE [Concomitant]
     Active Substance: VALACYCLOVIR HYDROCHLORIDE
     Indication: Infection prophylaxis
     Dates: start: 20230323
  17. RITUXIMAB [Suspect]
     Active Substance: RITUXIMAB
     Indication: Follicular lymphoma
     Route: 042
     Dates: start: 20230322, end: 20230712
  18. JANUMET [Concomitant]
     Active Substance: METFORMIN HYDROCHLORIDE\SITAGLIPTIN PHOSPHATE
     Indication: Type 2 diabetes mellitus
     Dosage: 50/1000 MG, 2/DAYS
     Dates: start: 2012
  19. PIOGLITAZONE [Concomitant]
     Active Substance: PIOGLITAZONE
     Indication: Type 2 diabetes mellitus
     Dates: start: 2012

REACTIONS (1)
  - Pneumonia respiratory syncytial viral [Recovered/Resolved]

NARRATIVE: CASE EVENT DATE: 20240108
